FAERS Safety Report 21126226 (Version 1)
Quarter: 2022Q3

REPORT INFORMATION
  Report Type: Spontaneous
  Country: US (occurrence: None)
  Receive Date: 20220724
  Receipt Date: 20220724
  Transmission Date: 20221026
  Serious: Yes (Disabling)
  Sender: FDA-Public Use
  Company Number: None

PATIENT
  Age: 60 Year
  Sex: Male
  Weight: 79.65 kg

DRUGS (5)
  1. CABENUVA [Suspect]
     Active Substance: CABOTEGRAVIR\RILPIVIRINE
     Indication: HIV infection
     Dosage: OTHER FREQUENCY : 2 X 60 DAYS;?
     Route: 030
     Dates: start: 20220531
  2. CAVENUBA [Concomitant]
  3. AMLODIPINE [Concomitant]
     Active Substance: AMLODIPINE BESYLATE
  4. MULTI VITAMINES [Concomitant]
  5. BONE AND JOINT SUPPLEMENTS [CALCIUM, MSM, GLUCOSAMINE CHONDROITIN ETC] [Concomitant]

REACTIONS (2)
  - Mood swings [None]
  - Tinnitus [None]

NARRATIVE: CASE EVENT DATE: 20220531
